FAERS Safety Report 6306364-6 (Version None)
Quarter: 2009Q3

REPORT INFORMATION
  Report Type: 
  Country: None (occurrence: None)
  Receive Date: 20090810
  Receipt Date: 20090723
  Transmission Date: 20100115
  Serious: Yes (Death, Hospitalization)
  Sender: FDA-Public Use
  Company Number: 2009002240

PATIENT
  Age: 61 Year
  Sex: Male
  Weight: 58.4 kg

DRUGS (9)
  1. ERLOTINIB (ERLOTINIB) (TABLET) (ERLOTINIB) [Suspect]
     Indication: LUNG ADENOCARCINOMA
     Dosage: (150 MG,QD), ORAL
     Route: 048
     Dates: start: 20080923, end: 20081016
  2. CYTOTECT (IMMUNOGLOBULIN) [Concomitant]
  3. LOXOPROFEN SODIUM(LOXOPROFEN SODIUM) [Concomitant]
  4. MAGMITT [Concomitant]
  5. CIBENOL(CIBENZOLINE SUCCINATE) [Concomitant]
  6. OXYCONTIN [Concomitant]
  7. OXINROM (ORGOTEIN) [Concomitant]
  8. NOVAMIN (PROCHLORPERAZINE) [Concomitant]
  9. GEMZAR [Concomitant]

REACTIONS (9)
  - INTERSTITIAL LUNG DISEASE [None]
  - MALIGNANT NEOPLASM PROGRESSION [None]
  - METASTASES TO BONE [None]
  - METASTASES TO CENTRAL NERVOUS SYSTEM [None]
  - METASTASES TO LIVER [None]
  - METASTASES TO LUNG [None]
  - METASTASES TO LYMPH NODES [None]
  - METASTASES TO PLEURA [None]
  - PULMONARY EMBOLISM [None]
